FAERS Safety Report 9701816 (Version 1)
Quarter: 2013Q4

REPORT INFORMATION
  Report Type: Spontaneous
  Country: US (occurrence: None)
  Receive Date: 20131120
  Receipt Date: 20131120
  Transmission Date: 20140711
  Serious: Yes (Hospitalization)
  Sender: FDA-Public Use
  Company Number: None

PATIENT
  Age: 8 Month
  Sex: Male
  Weight: 8.57 kg

DRUGS (2)
  1. LEUCOVORIN CALCIUM [Suspect]
     Dates: end: 20131027
  2. METHOTREXATE [Suspect]
     Dates: end: 20131022

REACTIONS (12)
  - Diarrhoea [None]
  - Dermatitis diaper [None]
  - Body temperature increased [None]
  - Neutrophil count decreased [None]
  - Skin induration [None]
  - Tenderness [None]
  - Purulence [None]
  - Pseudomonas test positive [None]
  - Alanine aminotransferase increased [None]
  - Aspartate aminotransferase increased [None]
  - Mouth ulceration [None]
  - Hypophagia [None]
